FAERS Safety Report 9529804 (Version 2)
Quarter: 2013Q4

REPORT INFORMATION
  Report Type: Report from Study
  Country: SE (occurrence: SE)
  Receive Date: 20130917
  Receipt Date: 20131010
  Transmission Date: 20140711
  Serious: Yes (Hospitalization)
  Sender: FDA-Public Use
  Company Number: SE-CELGENEUS-150-21880-13090411

PATIENT
  Age: 69 Year
  Sex: Male
  Weight: 88 kg

DRUGS (16)
  1. REVLIMID [Suspect]
     Indication: PLASMA CELL MYELOMA
     Dosage: 25 MILLIGRAM
     Route: 048
     Dates: start: 20130605
  2. REVLIMID [Suspect]
     Dosage: 25 MILLIGRAM
     Route: 048
  3. DEXAMETHASONE [Suspect]
     Indication: PLASMA CELL MYELOMA
     Route: 065
     Dates: start: 20130605
  4. DEXAMETHASONE [Suspect]
     Route: 048
  5. PAMIDRONATE DISODIUM [Concomitant]
     Indication: PRODUCT USED FOR UNKNOWN INDICATION
     Route: 041
     Dates: start: 20100201
  6. ENALAPRIL [Concomitant]
     Indication: HYPERTENSION
     Dosage: 10 MILLIGRAM
     Route: 065
     Dates: start: 20100222
  7. EMCONCOR [Concomitant]
     Indication: HYPERTENSION
     Route: 065
     Dates: start: 20100222
  8. EMCONCOR [Concomitant]
     Dosage: 5 MILLIGRAM
     Route: 065
     Dates: start: 20100222
  9. SIMVASTATIN [Concomitant]
     Indication: HYPERLIPIDAEMIA
     Dosage: 40 MILLIGRAM
     Route: 065
     Dates: start: 20110318
  10. OMEPRAZOL ACTAVIS [Concomitant]
     Indication: GASTRITIS
     Dosage: 20 MILLIGRAM
     Route: 065
     Dates: start: 20110725
  11. TROMBYL [Concomitant]
     Indication: PRODUCT USED FOR UNKNOWN INDICATION
     Route: 065
     Dates: end: 20130903
  12. CITODON [Concomitant]
     Indication: ANALGESIC THERAPY
     Dosage: 500/30MG
     Route: 065
     Dates: start: 20130114
  13. CITODON [Concomitant]
     Route: 065
  14. POTASSIUM CHLORIDE [Concomitant]
     Indication: PRODUCT USED FOR UNKNOWN INDICATION
     Route: 065
     Dates: start: 20130626
  15. MOVICOL [Concomitant]
     Indication: CONSTIPATION
     Dosage: SACHET
     Route: 048
     Dates: start: 20130626
  16. PLENDIL [Concomitant]
     Indication: HYPERTENSION
     Dosage: 10 MILLIGRAM
     Route: 065
     Dates: start: 20100222

REACTIONS (1)
  - Retinal artery thrombosis [Recovered/Resolved]
